FAERS Safety Report 5128708-3 (Version None)
Quarter: 2006Q4

REPORT INFORMATION
  Report Type: 
  Country: None (occurrence: None)
  Receive Date: 20061017
  Receipt Date: 20060830
  Transmission Date: 20070319
  Serious: Yes (Hospitalization)
  Sender: FDA-Public Use
  Company Number: FR-AVENTIS-200613012FR

PATIENT
  Age: 39 Year
  Sex: Female
  Weight: 104 kg

DRUGS (9)
  1. FLAGYL [Suspect]
     Indication: URINARY TRACT INFECTION
     Route: 048
     Dates: start: 20060721, end: 20060804
  2. LARIAM [Suspect]
     Route: 048
     Dates: start: 20060717, end: 20060724
  3. CIPROFLOXACIN HCL [Suspect]
     Indication: URINARY TRACT INFECTION
     Route: 048
     Dates: start: 20060721, end: 20060804
  4. POLYGYNAX [Concomitant]
     Indication: VAGINAL INFECTION
  5. SOLUBACTER [Concomitant]
     Indication: VAGINAL INFECTION
  6. DIANTALVIC [Concomitant]
  7. MORPHINE [Concomitant]
  8. MOTILIUM [Concomitant]
  9. SPASFON [Concomitant]

REACTIONS (14)
  - ABDOMINAL PAIN [None]
  - CHILLS [None]
  - CONSTIPATION [None]
  - ECCHYMOSIS [None]
  - GAMMA-GLUTAMYLTRANSFERASE INCREASED [None]
  - HEADACHE [None]
  - LEUKOCYTOSIS [None]
  - MUSCLE SPASMS [None]
  - PAIN [None]
  - PRURITUS [None]
  - RASH PAPULAR [None]
  - RENAL FAILURE ACUTE [None]
  - TENDON DISORDER [None]
  - VERTIGO [None]
